FAERS Safety Report 5748350-0 (Version None)
Quarter: 2008Q2

REPORT INFORMATION
  Report Type: 
  Country: None (occurrence: None)
  Receive Date: 20080523
  Receipt Date: 20080512
  Transmission Date: 20081010
  Serious: Yes (Hospitalization)
  Sender: FDA-Public Use
  Company Number: SE-GENENTECH-260289

PATIENT
  Sex: Female
  Weight: 58.503 kg

DRUGS (5)
  1. AVASTIN [Suspect]
     Indication: BREAST CANCER
     Dosage: UNK, UNK
     Dates: start: 20071024
  2. TAXOL [Suspect]
     Indication: BREAST CANCER
     Dates: start: 20071024
  3. ANTHRACYCLINE NOS [Concomitant]
     Indication: DRUG USE FOR UNKNOWN INDICATION
  4. TAXOTERE [Concomitant]
     Indication: DRUG USE FOR UNKNOWN INDICATION
  5. NAVELBINE [Concomitant]
     Indication: DRUG USE FOR UNKNOWN INDICATION

REACTIONS (3)
  - CARDIOMYOPATHY [None]
  - EJECTION FRACTION DECREASED [None]
  - PAIN IN EXTREMITY [None]
